FAERS Safety Report 5954922-0 (Version None)
Quarter: 2008Q4

REPORT INFORMATION
  Report Type: 
  Country: None (occurrence: None)
  Receive Date: 20081117
  Receipt Date: 20081017
  Transmission Date: 20090506
  Serious: No
  Sender: FDA-Public Use
  Company Number: US-BAYER-200836189NA

PATIENT
  Age: 30 Year
  Sex: Female

DRUGS (2)
  1. MIRENA [Suspect]
     Indication: CONTRACEPTION
     Route: 015
     Dates: start: 20061101
  2. LEXAPRO [Concomitant]
     Indication: ANXIETY
     Dates: end: 20081014

REACTIONS (3)
  - AMENORRHOEA [None]
  - BREAST TENDERNESS [None]
  - PREGNANCY WITH CONTRACEPTIVE DEVICE [None]
